FAERS Safety Report 11292888 (Version 2)
Quarter: 2015Q3

REPORT INFORMATION
  Report Type: Spontaneous
  Country: US (occurrence: US)
  Receive Date: 20150722
  Receipt Date: 20150730
  Transmission Date: 20151125
  Serious: Yes (Other)
  Sender: FDA-Public Use
  Company Number: US-LPDUSPRD-20150562

PATIENT
  Age: 73 Year
  Sex: Male

DRUGS (3)
  1. FUROSEMIDE INJECTION, USP (5702-25) [Suspect]
     Active Substance: FUROSEMIDE
     Dosage: DOSE NOT PROVIDED
     Route: 065
  2. METOPROLOL INJECTION, USP (1355-10) [Suspect]
     Active Substance: METOPROLOL
     Dosage: DOSE NOT PROVIDED
     Route: 065
  3. LOSARTAN. [Suspect]
     Active Substance: LOSARTAN
     Dosage: DOSE NOT PROVIDED
     Route: 065

REACTIONS (1)
  - Ichthyosis [Unknown]
